FAERS Safety Report 4426340-8 (Version None)
Quarter: 2004Q3

REPORT INFORMATION
  Report Type: 
  Country: None (occurrence: None)
  Receive Date: 20040810
  Receipt Date: 20040724
  Transmission Date: 20050211
  Serious: Yes (Hospitalization)
  Sender: FDA-Public Use
  Company Number: 2004-BP-03778NB

PATIENT
  Age: 71 Year
  Sex: Female

DRUGS (5)
  1. MICARDIS [Suspect]
     Indication: HYPERTENSION
     Dosage: 40 MG PO
     Route: 048
     Dates: start: 20040410, end: 20040422
  2. HERBESSER (KA) [Concomitant]
  3. SERENAL (OXAZOLAM) [Concomitant]
  4. LENDORMIN (BROTIZOLAM) (TA) [Concomitant]
  5. ALOSENN (ALOSENN) (GR) [Concomitant]

REACTIONS (1)
  - TOXIC SKIN ERUPTION [None]
